FAERS Safety Report 7183076-0 (Version None)
Quarter: 2010Q4

REPORT INFORMATION
  Report Type: 
  Country: None (occurrence: None)
  Receive Date: 20101222
  Receipt Date: 20100720
  Transmission Date: 20110411
  Serious: No
  Sender: FDA-Public Use
  Company Number: A0871417A

PATIENT
  Age: 77 Year
  Sex: Female

DRUGS (6)
  1. PROPAFENONE HYDROCHLORIDE [Suspect]
     Indication: ATRIAL FIBRILLATION
     Dosage: 1TAB THREE TIMES PER DAY
     Route: 048
     Dates: start: 20100501, end: 20100601
  2. RYTHMOL SR [Suspect]
     Indication: ATRIAL FIBRILLATION
     Dosage: 325MG TWICE PER DAY
     Route: 048
     Dates: start: 20100601
  3. LOVASTATIN [Concomitant]
  4. ASPIRIN [Concomitant]
  5. PEPCID [Concomitant]
  6. OXYBUTYNIN [Concomitant]

REACTIONS (1)
  - DIZZINESS [None]
